FAERS Safety Report 8428994-8 (Version None)
Quarter: 2012Q2

REPORT INFORMATION
  Report Type: 
  Country: None (occurrence: None)
  Receive Date: 20120612
  Receipt Date: 20120530
  Transmission Date: 20120825
  Serious: Yes (Hospitalization)
  Sender: FDA-Public Use
  Company Number: US-ELI_LILLY_AND_COMPANY-US201105005615

PATIENT
  Sex: Male

DRUGS (25)
  1. MULTI-VITAMINS [Concomitant]
  2. WARFARIN [Concomitant]
  3. KLOR-CON [Concomitant]
  4. ACIDOPHILUS [Concomitant]
  5. FISH OIL [Concomitant]
     Dosage: 1200 MG, UNK
  6. FORTEO [Suspect]
     Dosage: 20 UG, QD
     Route: 065
  7. FORTEO [Suspect]
     Dosage: 20 UG, QD
     Route: 065
  8. SPIRIVA [Concomitant]
  9. PREDNISONE [Concomitant]
  10. FORTEO [Suspect]
     Dosage: 20 UG, QD
     Route: 065
  11. FUROSEMIDE [Concomitant]
  12. RANITIDINE [Concomitant]
  13. PACERONE [Concomitant]
  14. FORTEO [Suspect]
     Indication: OSTEOPOROSIS
     Dosage: 20 UG, QD
     Route: 065
     Dates: start: 20110318
  15. FORTEO [Suspect]
     Dosage: 20 UG, QD
  16. METOPROLOL TARTRATE [Concomitant]
  17. CALCIUM [Concomitant]
     Dosage: 600 MG, 2/W
  18. FERROUS SULFATE TAB [Concomitant]
  19. ALBUTEROL [Concomitant]
  20. SPIRONOLACTONE [Concomitant]
  21. NITROGLYCERIN [Concomitant]
     Dosage: UNK, PRN
  22. PRAVASTATIN [Concomitant]
  23. THIAMINE [Concomitant]
  24. SYMBICORT [Concomitant]
  25. LEVAQUIN [Concomitant]

REACTIONS (11)
  - HAEMORRHAGE [None]
  - RENAL DISORDER [None]
  - BLOOD CREATININE INCREASED [None]
  - PROSTATIC DISORDER [None]
  - HOSPITALISATION [None]
  - URINARY RETENTION [None]
  - HIP ARTHROPLASTY [None]
  - WHEEZING [None]
  - CHEST PAIN [None]
  - INJECTION SITE HAEMATOMA [None]
  - CHRONIC OBSTRUCTIVE PULMONARY DISEASE [None]
